FAERS Safety Report 4805492-1 (Version None)
Quarter: 2005Q4

REPORT INFORMATION
  Report Type: 
  Country: None (occurrence: None)
  Receive Date: 20051018
  Receipt Date: 20051007
  Transmission Date: 20060501
  Serious: Yes (Other)
  Sender: FDA-Public Use
  Company Number: 2005RL000141

PATIENT
  Age: 82 Year
  Sex: Female

DRUGS (1)
  1. ISRADIPINE [Suspect]
     Dosage: 5 MG; QD; PO
     Route: 048
     Dates: start: 20050519, end: 20050607

REACTIONS (2)
  - PRURITUS [None]
  - RASH [None]
